FAERS Safety Report 16352188 (Version 1)
Quarter: 2019Q3

REPORT INFORMATION
  Report Type: Spontaneous
  Country: US (occurrence: US)
  Receive Date: 20190523
  Receipt Date: 20190523
  Transmission Date: 20191004
  Serious: Yes (Disabling, Other)
  Sender: FDA-Public Use
  Company Number: None

PATIENT
  Age: 21 Year
  Sex: Female
  Weight: 88.65 kg

DRUGS (3)
  1. QVAR REDIHALER [Concomitant]
     Active Substance: BECLOMETHASONE DIPROPIONATE
  2. SINGULAIR [Suspect]
     Active Substance: MONTELUKAST SODIUM
     Indication: ASTHMA
     Dosage: ?          QUANTITY:30 TABLET(S);?
     Route: 048
     Dates: start: 20190208, end: 20190426
  3. GARDEN OF LIFE WOMEN^S MULTI VITAMIN [Concomitant]

REACTIONS (4)
  - Depression [None]
  - Reaction to colouring [None]
  - Visual impairment [None]
  - Anxiety [None]

NARRATIVE: CASE EVENT DATE: 20190401
